FAERS Safety Report 4365728-0 (Version None)
Quarter: 2004Q2

REPORT INFORMATION
  Report Type: 
  Country: None (occurrence: None)
  Receive Date: 20040526
  Receipt Date: 20040526
  Transmission Date: 20050107
  Serious: Yes (Hospitalization)
  Sender: FDA-Public Use
  Company Number: None

PATIENT
  Age: 60 Year
  Sex: Female

DRUGS (7)
  1. GATIFLOXACIN [Suspect]
     Indication: PERITONITIS BACTERIAL
     Dosage: 400 MG QD PO
     Route: 048
     Dates: start: 20040302, end: 20040310
  2. FOLIC ACID [Concomitant]
  3. M.V.I. [Concomitant]
  4. SPIRONOLACTONE [Concomitant]
  5. FUROSEMIDE [Concomitant]
  6. THIAMINE [Concomitant]
  7. VIT K [Concomitant]

REACTIONS (3)
  - HYPERGLYCAEMIA [None]
  - HYPONATRAEMIA [None]
  - RENAL FAILURE ACUTE [None]
